FAERS Safety Report 8983732 (Version 1)
Quarter: 2012Q4

REPORT INFORMATION
  Report Type: 
  Country: DE (occurrence: DE)
  Receive Date: 20121224
  Receipt Date: 20121224
  Transmission Date: 20130627
  Serious: Yes (Other)
  Sender: FDA-Public Use
  Company Number: DE-ROCHE-1056456

PATIENT
  Age: 70 Year
  Sex: Female

DRUGS (6)
  1. PHENPROCOUMON [Suspect]
     Indication: AORTIC VALVE REPLACEMENT
     Route: 065
  2. TORASEMIDE [Suspect]
     Indication: AORTIC VALVE REPLACEMENT
     Route: 065
  3. AMIODARONE [Concomitant]
     Indication: AORTIC VALVE REPLACEMENT
     Route: 065
  4. LOSARTAN [Concomitant]
     Indication: AORTIC VALVE REPLACEMENT
     Route: 065
  5. BISOPROLOL [Concomitant]
     Route: 065
  6. ACETYLSALICYLIC ACID [Concomitant]
     Route: 065

REACTIONS (1)
  - Cutaneous lupus erythematosus [Recovering/Resolving]
